FAERS Safety Report 6405608-X (Version None)
Quarter: 2009Q4

REPORT INFORMATION
  Report Type: 
  Country: None (occurrence: None)
  Receive Date: 20091019
  Receipt Date: 20091013
  Transmission Date: 20100525
  Serious: Yes (Hospitalization)
  Sender: FDA-Public Use
  Company Number: A0787454A

PATIENT
  Age: 68 Year
  Sex: Male
  Weight: 103 kg

DRUGS (7)
  1. AVANDIA [Suspect]
     Dosage: 8MG PER DAY
     Route: 048
     Dates: start: 20050801, end: 20060901
  2. LISINOPRIL [Concomitant]
  3. GLIPIZIDE [Concomitant]
  4. LOPID [Concomitant]
  5. HYDROCHLOROTHIAZIDE [Concomitant]
  6. INSULIN [Concomitant]
  7. LOPRESSOR [Concomitant]

REACTIONS (3)
  - CEREBROVASCULAR ACCIDENT [None]
  - MYOCARDIAL INFARCTION [None]
  - MYOCARDIAL ISCHAEMIA [None]
